FAERS Safety Report 10058233 (Version 1)
Quarter: 2014Q2

REPORT INFORMATION
  Report Type: Report from Study
  Country: US (occurrence: US)
  Receive Date: 20140404
  Receipt Date: 20140404
  Transmission Date: 20141212
  Serious: Yes (Hospitalization)
  Sender: FDA-Public Use
  Company Number: US-JNJFOC-20140319030

PATIENT
  Age: 71 Year
  Sex: Male
  Weight: 113.4 kg

DRUGS (2)
  1. REMICADE [Suspect]
     Indication: PSORIASIS
     Route: 042
     Dates: start: 2013, end: 2014
  2. REMICADE [Suspect]
     Indication: PSORIASIS
     Route: 042
     Dates: end: 2013

REACTIONS (3)
  - Ankle fracture [Recovered/Resolved]
  - Drug ineffective [Not Recovered/Not Resolved]
  - Infection [Not Recovered/Not Resolved]
